FAERS Safety Report 9991424 (Version 1)
Quarter: 2014Q1

REPORT INFORMATION
  Report Type: Report from Study
  Country: US (occurrence: US)
  Receive Date: 20140310
  Receipt Date: 20140310
  Transmission Date: 20141002
  Serious: No
  Sender: FDA-Public Use
  Company Number: US-ABBVIE-13P-163-1135860-00

PATIENT
  Age: 73 Year
  Sex: Male

DRUGS (18)
  1. HUMIRA [Suspect]
     Indication: PSORIASIS
     Dates: start: 20130222
  2. LUNESTA [Concomitant]
     Indication: INSOMNIA
     Dosage: 3 MG AT BEDTIME
  3. CARISOPRODOL [Concomitant]
     Indication: MUSCLE SPASMS
  4. ENDODAN [Concomitant]
     Indication: PAIN
     Dosage: 4.8/325 MG 2 TABLETS THREE TIMES DAILY
  5. METFORMIN HYDROCHLORIDE [Concomitant]
     Indication: DIABETES MELLITUS
  6. NEXIUM [Concomitant]
     Indication: GASTROOESOPHAGEAL REFLUX DISEASE
     Dosage: 40 MG DAILY
  7. PREDNISONE [Concomitant]
     Indication: RHEUMATOID ARTHRITIS
     Dosage: 2 MG DAILY
  8. BUTALBITAL COMPOUND [Concomitant]
     Indication: MIGRAINE
  9. FISH OIL [Concomitant]
     Indication: PRODUCT USED FOR UNKNOWN INDICATION
  10. VITAMIN C [Concomitant]
     Indication: PRODUCT USED FOR UNKNOWN INDICATION
  11. MULTIVITAMIN [Concomitant]
     Indication: PRODUCT USED FOR UNKNOWN INDICATION
     Dosage: DAILY
  12. GLUCOSAMINE + CHONDROITIN [Concomitant]
     Indication: PRODUCT USED FOR UNKNOWN INDICATION
     Dosage: 1500/1200 MG TWICE DAILY
  13. BIOTIN [Concomitant]
     Indication: ONYCHOCLASIS
     Dosage: 2500 MG DAILY
  14. GARLIC COMPLEX [Concomitant]
     Indication: PRODUCT USED FOR UNKNOWN INDICATION
  15. VITAMIN E [Concomitant]
     Indication: PRODUCT USED FOR UNKNOWN INDICATION
  16. SUPER B COMPLEX [Concomitant]
     Indication: PRODUCT USED FOR UNKNOWN INDICATION
     Dosage: DAILY
  17. POTASSIUM GLUCONATE [Concomitant]
     Indication: PRODUCT USED FOR UNKNOWN INDICATION
     Dosage: 99 MG DAILY
  18. CALCIUM MAGNESIUM ZINC [Concomitant]
     Indication: VITAMIN SUPPLEMENTATION

REACTIONS (1)
  - Injection site bruising [Unknown]
